FAERS Safety Report 14041912 (Version 1)
Quarter: 2017Q4

REPORT INFORMATION
  Report Type: Spontaneous
  Country: US (occurrence: US)
  Receive Date: 20171004
  Receipt Date: 20171004
  Transmission Date: 20180321
  Serious: No
  Sender: FDA-Public Use
  Company Number: US-INDIVIOR LIMITED-INDV-095395-2016

PATIENT
  Age: 83 Year
  Sex: Female

DRUGS (1)
  1. SUBOXONE [Suspect]
     Active Substance: BUPRENORPHINE HYDROCHLORIDE\NALOXONE HYDROCHLORIDE
     Indication: DRUG USE DISORDER
     Dosage: 2MG, BID
     Route: 060
     Dates: start: 20160927

REACTIONS (13)
  - Product use issue [Not Recovered/Not Resolved]
  - Nervousness [Not Recovered/Not Resolved]
  - Stomatitis [Not Recovered/Not Resolved]
  - Cheilitis [Not Recovered/Not Resolved]
  - Pain [Not Recovered/Not Resolved]
  - Tongue discomfort [Not Recovered/Not Resolved]
  - Drug withdrawal syndrome [Not Recovered/Not Resolved]
  - Oral discomfort [Not Recovered/Not Resolved]
  - Malaise [Not Recovered/Not Resolved]
  - Lip swelling [Not Recovered/Not Resolved]
  - Asthenia [Not Recovered/Not Resolved]
  - Feeling abnormal [Not Recovered/Not Resolved]
  - Swollen tongue [Not Recovered/Not Resolved]

NARRATIVE: CASE EVENT DATE: 201609
